FAERS Safety Report 7718180-9 (Version None)
Quarter: 2011Q3

REPORT INFORMATION
  Report Type: 
  Country: None (occurrence: None)
  Receive Date: 20110830
  Receipt Date: 20110818
  Transmission Date: 20111222
  Serious: Yes (Hospitalization, Other)
  Sender: FDA-Public Use
  Company Number: PHEH2011US01873

PATIENT
  Sex: Male

DRUGS (4)
  1. ZOMETA [Suspect]
  2. DEXAMETHASONE [Concomitant]
  3. REVLIMID [Suspect]
     Dosage: 25 MG, UNK
     Route: 048
     Dates: start: 20110201
  4. COUMADIN [Concomitant]

REACTIONS (6)
  - OSTEONECROSIS [None]
  - PAIN IN JAW [None]
  - PULMONARY EMBOLISM [None]
  - DEEP VEIN THROMBOSIS [None]
  - COUGH [None]
  - CHEST PAIN [None]
